FAERS Safety Report 4627023-1 (Version None)
Quarter: 2005Q2

REPORT INFORMATION
  Report Type: 
  Country: None (occurrence: None)
  Receive Date: 20050405
  Receipt Date: 20050330
  Transmission Date: 20051028
  Serious: Yes (Hospitalization)
  Sender: FDA-Public Use
  Company Number: PHRM2005FR01185

PATIENT
  Age: 73 Year
  Sex: Female

DRUGS (12)
  1. LUDIOMIL 75 [Suspect]
     Indication: DEPRESSION
     Dosage: 75 MG, QD
     Route: 048
     Dates: end: 20050215
  2. LORAZEPAM [Concomitant]
     Dosage: 3.5 MG DAILY
     Route: 048
  3. EFFERALGAN [Concomitant]
     Dosage: 1.5 G DAILY
     Route: 048
  4. CLARITYNE [Concomitant]
     Dosage: 10 MG, QD
     Route: 048
  5. PNEUMOREL [Concomitant]
     Route: 048
     Dates: end: 20050212
  6. VASTAREL [Concomitant]
     Dosage: 60 MG DAILY
     Route: 048
  7. CARBOSYLANE [Concomitant]
     Dosage: 3 DF DAILY
  8. FORLAX [Concomitant]
     Dosage: 1 DF, QD
  9. SULFARLEM [Concomitant]
     Dosage: 3 DF DAILY
  10. OROPIVALONE [Concomitant]
     Dates: start: 20050212
  11. MAXILASE [Concomitant]
     Dosage: 1 DF, TID
     Route: 048
     Dates: start: 20050212
  12. RHINOFLUIMUCIL [Concomitant]
     Dosage: 1 DF, TID
     Dates: start: 20050212

REACTIONS (10)
  - ALANINE AMINOTRANSFERASE INCREASED [None]
  - ASPARTATE AMINOTRANSFERASE INCREASED [None]
  - BLOOD CREATINE PHOSPHOKINASE INCREASED [None]
  - BLOOD PRESSURE INCREASED [None]
  - CONFUSIONAL STATE [None]
  - ECCHYMOSIS [None]
  - FALL [None]
  - GAMMA-GLUTAMYLTRANSFERASE INCREASED [None]
  - HEART RATE INCREASED [None]
  - MYOGLOBIN BLOOD INCREASED [None]
